FAERS Safety Report 6720052-3 (Version None)
Quarter: 2010Q2

REPORT INFORMATION
  Report Type: 
  Country: None (occurrence: None)
  Receive Date: 20100511
  Receipt Date: 20100505
  Transmission Date: 20101027
  Serious: Yes (Other)
  Sender: FDA-Public Use
  Company Number: CHPA2010US06055

PATIENT
  Age: 32 Year
  Sex: Female
  Weight: 90.249 kg

DRUGS (3)
  1. EXCEDRIN SINUS HEADACHE (NCH) [Suspect]
     Indication: SINUS HEADACHE
     Dosage: 2 DF, QD
     Route: 048
     Dates: start: 20100331, end: 20100331
  2. LEVOTHYROXINE SODIUM [Concomitant]
     Indication: HYPERTHYROIDISM
     Dosage: UNK
     Route: 048
  3. TRIAMTERENE [Concomitant]
     Indication: HYPERTENSION
     Dosage: UNK
     Route: 048

REACTIONS (6)
  - ASTHMA [None]
  - BRONCHITIS [None]
  - DYSPNOEA [None]
  - HYPERTENSION [None]
  - MIGRAINE [None]
  - OFF LABEL USE [None]
